FAERS Safety Report 18021615 (Version 2)
Quarter: 2020Q3

REPORT INFORMATION
  Report Type: Spontaneous
  Country: CH (occurrence: CH)
  Receive Date: 20200714
  Receipt Date: 20200806
  Transmission Date: 20201103
  Serious: Yes (Death)
  Sender: FDA-Public Use
  Company Number: CH-BAXTER-2020BAX013936

PATIENT
  Sex: Female

DRUGS (3)
  1. GLUCOSE [Suspect]
     Active Substance: DEXTROSE
     Indication: PERITONEAL DIALYSIS
     Dosage: 1.36%
     Route: 033
     Dates: start: 201503
  2. EXTRANEAL [Suspect]
     Active Substance: CALCIUM CHLORIDE\ICODEXTRIN\MAGNESIUM CHLORIDE\SODIUM CHLORIDE\SODIUM LACTATE
     Indication: PERITONEAL DIALYSIS
     Route: 033
     Dates: start: 201503
  3. PHYSIONEAL 40 1.36% [Suspect]
     Active Substance: CALCIUM CL\DEXTROSE\MAGNESIUM CL\SODIUM BICAR\SODIUM CL\SODIUM LACT
     Indication: PERITONEAL DIALYSIS
     Route: 033
     Dates: start: 201503

REACTIONS (1)
  - Death [Fatal]
